FAERS Safety Report 7484473-6 (Version None)
Quarter: 2011Q1

REPORT INFORMATION
  Report Type: 
  Country: None (occurrence: None)
  Receive Date: 20110309
  Receipt Date: 20101209
  Transmission Date: 20110831
  Serious: No
  Sender: FDA-Public Use
  Company Number: 2010SP064179

PATIENT
  Age: 51 Year
  Sex: Male

DRUGS (2)
  1. SAPHRIS [Suspect]
     Indication: BIPOLAR I DISORDER
     Dosage: 5 MG; BID, 10 MG; BID
     Dates: start: 20101101
  2. SAPHRIS [Suspect]
     Indication: BIPOLAR I DISORDER
     Dosage: 5 MG; BID, 10 MG; BID

REACTIONS (2)
  - ABNORMAL BEHAVIOUR [None]
  - NIGHTMARE [None]
